FAERS Safety Report 4977797-5 (Version None)
Quarter: 2006Q2

REPORT INFORMATION
  Report Type: 
  Country: None (occurrence: None)
  Receive Date: 20060417
  Receipt Date: 20060405
  Transmission Date: 20061013
  Serious: Yes (Hospitalization, Other)
  Sender: FDA-Public Use
  Company Number: 2006047898

PATIENT
  Age: 59 Year
  Sex: Female
  Weight: 71.6683 kg

DRUGS (10)
  1. GENOTROPIN [Suspect]
     Indication: GROWTH HORMONE DEFICIENCY
     Dosage: 0.4 MG (0.4 MG, 1 IN 1 D), SUBCUTANEOUS
     Route: 058
     Dates: start: 20060303
  2. PLENDIL [Concomitant]
  3. SINGULAIR [Concomitant]
  4. COZAAR [Concomitant]
  5. ALBUTEROL [Concomitant]
  6. PULMICORT [Concomitant]
  7. NASACORT [Concomitant]
  8. PROZAC [Concomitant]
  9. ACTONEL [Concomitant]
  10. CORTEF [Concomitant]

REACTIONS (7)
  - BLOOD POTASSIUM DECREASED [None]
  - CONDITION AGGRAVATED [None]
  - DIABETES MELLITUS [None]
  - DRUG HYPERSENSITIVITY [None]
  - GASTROENTERITIS [None]
  - HYPERTENSION [None]
  - PNEUMONIA [None]
